FAERS Safety Report 8952785 (Version 1)
Quarter: 2012Q4

REPORT INFORMATION
  Report Type: 
  Country: US (occurrence: US)
  Receive Date: 20121204
  Receipt Date: 20121204
  Transmission Date: 20130627
  Serious: Yes (Death, Hospitalization)
  Sender: FDA-Public Use
  Company Number: US-BAYER-2012-126622

PATIENT
  Age: 87 Year
  Sex: Male

DRUGS (3)
  1. BAYER GENUINE ASPIRIN ORIGINAL STRENGTH [Suspect]
     Route: 048
  2. PLAVIX [Suspect]
  3. COUMADIN [Suspect]

REACTIONS (4)
  - Renal failure [Fatal]
  - Weight increased [None]
  - Cardiac disorder [Fatal]
  - Contusion [None]
